FAERS Safety Report 17785289 (Version 1)
Quarter: 2020Q2

REPORT INFORMATION
  Report Type: Spontaneous
  Country: FR (occurrence: FR)
  Receive Date: 20200513
  Receipt Date: 20200513
  Transmission Date: 20200714
  Serious: Yes (Hospitalization)
  Sender: FDA-Public Use
  Company Number: FR-JNJFOC-20191212824

PATIENT
  Age: 71 Year
  Sex: Male
  Weight: 58 kg

DRUGS (10)
  1. PARACETAMOL [Suspect]
     Active Substance: ACETAMINOPHEN
     Indication: PAIN
     Route: 048
     Dates: start: 20190131, end: 20190701
  2. REVLIMID [Suspect]
     Active Substance: LENALIDOMIDE
     Indication: PLASMA CELL MYELOMA
     Route: 048
     Dates: start: 20190211, end: 20190625
  3. PRIVIGEN [Concomitant]
     Active Substance: HUMAN IMMUNOGLOBULIN G
  4. BACTRIM [Suspect]
     Active Substance: SULFAMETHOXAZOLE\TRIMETHOPRIM
     Indication: PROPHYLAXIS
     Dosage: 3 DF, 1/WEEK
     Route: 048
     Dates: start: 20190208, end: 20190625
  5. VELCADE [Suspect]
     Active Substance: BORTEZOMIB
     Indication: PLASMA CELL MYELOMA
     Dosage: 1.3 MG/M2, UNK
     Route: 042
     Dates: start: 20190214, end: 20190625
  6. TRAMADOL HYDROCHLORIDE. [Suspect]
     Active Substance: TRAMADOL HYDROCHLORIDE
     Indication: PAIN
     Dosage: 200 MG, 1/DAY
     Route: 048
     Dates: start: 20190131, end: 20190701
  7. PAMIDRONATE DISODIUM. [Suspect]
     Active Substance: PAMIDRONATE DISODIUM
     Indication: SPINAL PAIN
     Route: 042
     Dates: start: 20190228, end: 20190701
  8. NEOFORDEX [Suspect]
     Active Substance: DEXAMETHASONE ACETATE
     Indication: PLASMA CELL MYELOMA
     Dosage: 40 MG, UNK
     Route: 048
     Dates: start: 20190214, end: 20190701
  9. VALACICLOVIR [Suspect]
     Active Substance: VALACYCLOVIR HYDROCHLORIDE
     Indication: PROPHYLAXIS
     Dosage: 1 DF, 1/DAY
     Route: 048
     Dates: start: 20190208, end: 20190701
  10. INNOHEP [Suspect]
     Active Substance: TINZAPARIN SODIUM
     Indication: THROMBOSIS PROPHYLAXIS
     Dosage: 1 DF, UNK
     Route: 058
     Dates: start: 20190208, end: 20190701

REACTIONS (1)
  - Drug reaction with eosinophilia and systemic symptoms [Recovered/Resolved]

NARRATIVE: CASE EVENT DATE: 20190620
